FAERS Safety Report 24550567 (Version 2)
Quarter: 2025Q2

REPORT INFORMATION
  Report Type: Spontaneous
  Country: PT (occurrence: PT)
  Receive Date: 20241025
  Receipt Date: 20250425
  Transmission Date: 20250717
  Serious: Yes (Hospitalization, Other)
  Sender: ALEXION PHARMACEUTICALS
  Company Number: PT-AUROBINDO-AUR-APL-2024-048871

PATIENT
  Age: 71 Year

DRUGS (6)
  1. DAPAGLIFLOZIN\METFORMIN HYDROCHLORIDE [Suspect]
     Active Substance: DAPAGLIFLOZIN\METFORMIN HYDROCHLORIDE
     Indication: Type 2 diabetes mellitus
     Route: 065
  2. DAPAGLIFLOZIN\METFORMIN HYDROCHLORIDE [Suspect]
     Active Substance: DAPAGLIFLOZIN\METFORMIN HYDROCHLORIDE
     Dosage: 1000/5 MG, BID
     Route: 065
  3. INDAPAMIDE [Concomitant]
     Active Substance: INDAPAMIDE
     Indication: Hypertension
     Dosage: 1.5 MILLIGRAM, DAILY
     Route: 065
  4. OLMESARTAN [Concomitant]
     Active Substance: OLMESARTAN
     Indication: Hypertension
     Dosage: 20 MILLIGRAM, DAILY
     Route: 065
  5. AMLODIPINE [Concomitant]
     Active Substance: AMLODIPINE BESYLATE
     Indication: Hypertension
     Dosage: 5 MILLIGRAM, DAILY
     Route: 065
  6. ATORVASTATIN [Concomitant]
     Active Substance: ATORVASTATIN
     Indication: Dyslipidaemia
     Dosage: 20 MILLIGRAM, DAILY
     Route: 065

REACTIONS (2)
  - Drug-induced liver injury [Recovered/Resolved]
  - Hepatotoxicity [Recovered/Resolved]
